FAERS Safety Report 4633655-7 (Version None)
Quarter: 2005Q2

REPORT INFORMATION
  Report Type: 
  Country: None (occurrence: None)
  Receive Date: 20050325
  Receipt Date: 20050104
  Transmission Date: 20051028
  Serious: No
  Sender: FDA-Public Use
  Company Number: USA050187356

PATIENT
  Age: 86 Year
  Sex: Female
  Weight: 55 kg

DRUGS (1)
  1. FORTEO [Suspect]
     Indication: OSTEOPOROSIS
     Dosage: 20 UG/1 DAY
     Dates: start: 20040930

REACTIONS (6)
  - ACUTE SINUSITIS [None]
  - BACK PAIN [None]
  - COUGH [None]
  - INCREASED UPPER AIRWAY SECRETION [None]
  - NAUSEA [None]
  - VIRAL INFECTION [None]
